FAERS Safety Report 8046629-3 (Version None)
Quarter: 2012Q1

REPORT INFORMATION
  Report Type: 
  Country: None (occurrence: None)
  Receive Date: 20120114
  Receipt Date: 20120109
  Transmission Date: 20120608
  Serious: No
  Sender: FDA-Public Use
  Company Number: US-BAYER-2012-003325

PATIENT
  Age: 53 Year
  Sex: Female
  Weight: 78 kg

DRUGS (3)
  1. CLONIDINE [Concomitant]
  2. ALEVE (CAPLET) [Suspect]
     Indication: ARTHRALGIA
     Dosage: 2 DF, BID
     Route: 048
     Dates: start: 20111005
  3. XANAX [Concomitant]

REACTIONS (2)
  - GLOSSODYNIA [None]
  - ARTHRALGIA [None]
